FAERS Safety Report 9176983 (Version 2)
Quarter: 2013Q2

REPORT INFORMATION
  Report Type: Spontaneous
  Country: US (occurrence: US)
  Receive Date: 20130321
  Receipt Date: 20130404
  Transmission Date: 20140414
  Serious: No
  Sender: FDA-Public Use
  Company Number: US-PFIZER INC-2013091719

PATIENT
  Age: 62 Year
  Sex: Female
  Weight: 81.63 kg

DRUGS (17)
  1. LIPITOR [Suspect]
     Indication: BLOOD CHOLESTEROL INCREASED
     Dosage: 10 MG, DAILY
     Route: 048
     Dates: end: 201302
  2. BENICAR [Concomitant]
     Indication: HYPERTENSION
     Dosage: 10 MG, DAILY
  3. BENICAR [Concomitant]
     Dosage: 5 MG, UNK
  4. HYDROCHLOROTHIAZIDE [Concomitant]
     Indication: POLYURIA
     Dosage: 25 MG, DAILY
  5. POTASSIUM CHLORIDE [Concomitant]
     Indication: BLOOD POTASSIUM DECREASED
     Dosage: 20 MEQ, DAILY
     Route: 048
  6. POTASSIUM CHLORIDE [Concomitant]
     Indication: HYPERTENSION
  7. FLOVENT [Concomitant]
     Dosage: 110 UG/ACTUATION, PRN
  8. ECOTRIN [Concomitant]
     Dosage: 81 MG, 1X/DAY
  9. VITAMIN D [Concomitant]
     Indication: VITAMIN SUPPLEMENTATION
     Dosage: UNK
  10. VITAMIN B COMPLEX [Concomitant]
     Indication: VITAMIN SUPPLEMENTATION
     Dosage: UNK
  11. CENTRUM SILVER [Concomitant]
     Dosage: UNK
  12. GARLIC [Concomitant]
     Dosage: UNK
  13. PROAIR HFA [Concomitant]
     Dosage: UNK
  14. CEFTIN [Concomitant]
     Dosage: 250 MG, UNK
  15. EC-NAPROSYN [Concomitant]
     Dosage: 375 MG, UNK
  16. KEFLEX [Concomitant]
     Dosage: 500 MG, UNK
  17. LEVAQUIN [Concomitant]
     Dosage: 500 MG, UNK

REACTIONS (8)
  - Arthralgia [Recovering/Resolving]
  - Myalgia [Recovering/Resolving]
  - Pain in extremity [Recovering/Resolving]
  - Local swelling [Recovering/Resolving]
  - Asthenia [Recovering/Resolving]
  - Arthropathy [Recovering/Resolving]
  - Neuralgia [Recovering/Resolving]
  - Chondrocalcinosis [Recovering/Resolving]
